FAERS Safety Report 6316899-8 (Version None)
Quarter: 2009Q3

REPORT INFORMATION
  Report Type: 
  Country: None (occurrence: None)
  Receive Date: 20090820
  Receipt Date: 20090806
  Transmission Date: 20100115
  Serious: Yes (Disabling)
  Sender: FDA-Public Use
  Company Number: PT-MYLANLABS-2009S1013971

PATIENT
  Age: 57 Year
  Sex: Female
  Weight: 66 kg

DRUGS (3)
  1. TOPIRAMATE [Suspect]
     Indication: DECREASED APPETITE
     Route: 048
     Dates: start: 20090619, end: 20090619
  2. BETAHISTINE HYDROCHLORIDE [Concomitant]
     Indication: VERTIGO
     Route: 048
  3. TRIMETAZIDINE DIHYDROCHLORIDE [Concomitant]
     Indication: VERTIGO
     Route: 048

REACTIONS (3)
  - DYSARTHRIA [None]
  - NERVOUSNESS [None]
  - PARAESTHESIA [None]
